FAERS Safety Report 6638467-0 (Version None)
Quarter: 2010Q1

REPORT INFORMATION
  Report Type: 
  Country: None (occurrence: None)
  Receive Date: 20100312
  Receipt Date: 20100225
  Transmission Date: 20100710
  Serious: Yes (Death, Hospitalization, Other)
  Sender: FDA-Public Use
  Company Number: 2010BI001950

PATIENT
  Age: 54 Year
  Sex: Male

DRUGS (6)
  1. ZEVALIN [Suspect]
     Indication: NON-HODGKIN'S LYMPHOMA
     Dosage: 1X
     Dates: start: 20080801, end: 20080801
  2. ZEVALIN [Suspect]
     Indication: STEM CELL TRANSPLANT
     Dosage: 1X
     Dates: start: 20080801, end: 20080801
  3. RITUXIMAB [Concomitant]
  4. CYCLOSPORINE [Concomitant]
  5. FLUDARABINE PHOSPHATE [Concomitant]
  6. CORTICOSTEROIDS [Concomitant]

REACTIONS (16)
  - ACUTE GRAFT VERSUS HOST DISEASE IN INTESTINE [None]
  - ACUTE GRAFT VERSUS HOST DISEASE IN SKIN [None]
  - ASTHENIA [None]
  - BLOOD POTASSIUM INCREASED [None]
  - DECREASED APPETITE [None]
  - DEHYDRATION [None]
  - DIARRHOEA [None]
  - FATIGUE [None]
  - MALNUTRITION [None]
  - MYOPATHY [None]
  - NAUSEA [None]
  - PANCYTOPENIA [None]
  - RASH MACULO-PAPULAR [None]
  - RENAL FAILURE [None]
  - SEPTIC SHOCK [None]
  - VOMITING [None]
